FAERS Safety Report 8225770-6 (Version None)
Quarter: 2012Q1

REPORT INFORMATION
  Report Type: 
  Country: None (occurrence: None)
  Receive Date: 20120321
  Receipt Date: 20120309
  Transmission Date: 20120608
  Serious: Yes (Hospitalization, Other)
  Sender: FDA-Public Use
  Company Number: US-ELI_LILLY_AND_COMPANY-US201203003833

PATIENT
  Sex: Male

DRUGS (3)
  1. HUMULIN N [Suspect]
     Indication: DIABETES MELLITUS
     Dosage: 100 U, AT BREAKFAST
  2. HUMALOG [Suspect]
     Indication: DIABETES MELLITUS
     Dosage: 40 U, AT MEAL
  3. HUMULIN N [Suspect]
     Dosage: 100 U, AT BEDTIME

REACTIONS (3)
  - KNEE ARTHROPLASTY [None]
  - JOINT INJURY [None]
  - ARTHRITIS [None]
